FAERS Safety Report 6770421-0 (Version None)
Quarter: 2010Q2

REPORT INFORMATION
  Report Type: 
  Country: None (occurrence: None)
  Receive Date: 20100615
  Receipt Date: 20100603
  Transmission Date: 20101027
  Serious: Yes (Disabling, Other)
  Sender: FDA-Public Use
  Company Number: US-WYE-H15498510

PATIENT
  Sex: Female

DRUGS (4)
  1. EFFEXOR [Suspect]
     Indication: DEPRESSION
     Dosage: 150 MG OR 300 MG DAILY TO START; INCREASED TO 300 MG ON AN UNKNOWN DATE AND THEN AFTER GASTRIC
  2. EFFEXOR [Suspect]
     Indication: PAIN
  3. LIPITOR [Concomitant]
     Dosage: UNKNOWN
  4. MS CONTIN [Concomitant]
     Dosage: UNKNOWN

REACTIONS (11)
  - ABDOMINAL PAIN [None]
  - BLOOD PRESSURE INCREASED [None]
  - BURSITIS [None]
  - CERVICAL SPINAL STENOSIS [None]
  - DRUG INEFFECTIVE [None]
  - GASTRIC BYPASS [None]
  - GASTRIC ULCER [None]
  - HERNIA [None]
  - LUMBAR SPINAL STENOSIS [None]
  - NEUROMA [None]
  - PLANTAR FASCIITIS [None]
